FAERS Safety Report 14876582 (Version 1)
Quarter: 2018Q2

REPORT INFORMATION
  Report Type: Spontaneous
  Country: US (occurrence: US)
  Receive Date: 20180510
  Receipt Date: 20180510
  Transmission Date: 20180711
  Serious: No
  Sender: FDA-Public Use
  Company Number: US-CELLTRION INC.-2018US017987

PATIENT

DRUGS (3)
  1. INFLECTRA [Suspect]
     Active Substance: INFLIXIMAB-DYYB
     Indication: ANKYLOSING SPONDYLITIS
     Dosage: 600 MG AT WEEKS 0, 2, 6 THEN EVERY 8 WEEKS)
     Route: 065
  2. INFLECTRA [Suspect]
     Active Substance: INFLIXIMAB-DYYB
     Dosage: 6 DF, CYCLIC (EVERY 8 WEEKS)
     Route: 065
  3. INFLECTRA [Suspect]
     Active Substance: INFLIXIMAB-DYYB
     Dosage: 6 DF, CYCLIC (EVERY 8 WEEKS)
     Route: 065
     Dates: start: 20180411, end: 20180411

REACTIONS (2)
  - Drug dose omission [Unknown]
  - Drug prescribing error [Unknown]
